FAERS Safety Report 6367812-9 (Version None)
Quarter: 2009Q3

REPORT INFORMATION
  Report Type: 
  Country: None (occurrence: None)
  Receive Date: 20090921
  Receipt Date: 20090916
  Transmission Date: 20100115
  Serious: Yes (Other)
  Sender: FDA-Public Use
  Company Number: FI-ROXANE LABORATORIES, INC.-2009-RO-00942RO

PATIENT
  Age: 4 Month
  Sex: Male

DRUGS (5)
  1. LEVETIRACETAM [Suspect]
     Indication: MYOCLONIC EPILEPSY
  2. TOPIRAMATE [Suspect]
     Indication: MYOCLONIC EPILEPSY
  3. LAMOTRIGINE [Suspect]
     Indication: MYOCLONIC EPILEPSY
  4. VALPROATE SODIUM [Suspect]
     Indication: MYOCLONIC EPILEPSY
  5. CARBAMAZEPINE [Suspect]
     Indication: MYOCLONIC EPILEPSY

REACTIONS (3)
  - ALANINE AMINOTRANSFERASE INCREASED [None]
  - CONVULSION [None]
  - TREATMENT FAILURE [None]
